FAERS Safety Report 21543048 (Version 2)
Quarter: 2025Q1

REPORT INFORMATION
  Report Type: Spontaneous
  Country: JP (occurrence: JP)
  Receive Date: 20221102
  Receipt Date: 20250324
  Transmission Date: 20250408
  Serious: Yes (Other)
  Sender: ALEXION PHARMACEUTICALS
  Company Number: 2022A358965

PATIENT
  Age: 70 Year
  Weight: 44 kg

DRUGS (1)
  1. LYNPARZA [Suspect]
     Active Substance: OLAPARIB
     Indication: Ovarian cancer recurrent

REACTIONS (4)
  - Interstitial lung disease [Recovered/Resolved]
  - Depressive symptom [Recovered/Resolved]
  - Nausea [Unknown]
  - Decreased appetite [Unknown]
